FAERS Safety Report 7247376-8 (Version None)
Quarter: 2011Q1

REPORT INFORMATION
  Report Type: 
  Country: None (occurrence: None)
  Receive Date: 20110127
  Receipt Date: 20110113
  Transmission Date: 20110831
  Serious: Yes (Hospitalization)
  Sender: FDA-Public Use
  Company Number: PHHY2010US85459

PATIENT
  Sex: Female
  Weight: 58.4 kg

DRUGS (8)
  1. TYLENOL-500 [Concomitant]
     Dosage: 600 MG, UNK
  2. EXJADE [Suspect]
     Dosage: 250 MG, BID
     Route: 048
  3. NEXIUM [Concomitant]
     Dosage: 40 MG, UNK
  4. CYTARABINE [Concomitant]
  5. DIFLUCAN [Concomitant]
     Dosage: 200 MG, UNK
  6. EXJADE [Suspect]
     Indication: IRON OVERLOAD
     Dosage: 500 MG, BID
     Route: 048
     Dates: start: 20101124
  7. METHOTREXATE [Concomitant]
  8. VALTREX [Concomitant]
     Dosage: 500 MG, UNK

REACTIONS (7)
  - BACK PAIN [None]
  - DEVICE RELATED INFECTION [None]
  - INCORRECT DOSE ADMINISTERED [None]
  - HAEMOGLOBIN DECREASED [None]
  - DIARRHOEA [None]
  - FEBRILE NEUTROPENIA [None]
  - PLATELET COUNT DECREASED [None]
